FAERS Safety Report 7772928-6 (Version None)
Quarter: 2011Q3

REPORT INFORMATION
  Report Type: 
  Country: None (occurrence: None)
  Receive Date: 20110922
  Receipt Date: 20110331
  Transmission Date: 20111222
  Serious: No
  Sender: FDA-Public Use
  Company Number: US-ASTRAZENECA-2011SE18318

PATIENT
  Age: 57 Year
  Sex: Female
  Weight: 79.4 kg

DRUGS (5)
  1. BACLOFEN [Concomitant]
     Indication: MUSCULOSKELETAL DISCOMFORT
  2. SEROQUEL [Suspect]
     Indication: BIPOLAR DISORDER
     Route: 048
  3. LEVOTHYROXINE SODIUM [Concomitant]
     Indication: THYROID DISORDER
  4. DIAZAPAM [Concomitant]
     Indication: ANXIETY
  5. LAMOTRIGINE [Concomitant]
     Indication: ANXIETY

REACTIONS (2)
  - DRUG DOSE OMISSION [None]
  - INSOMNIA [None]
